FAERS Safety Report 7490717-7 (Version None)
Quarter: 2011Q2

REPORT INFORMATION
  Report Type: 
  Country: None (occurrence: None)
  Receive Date: 20110517
  Receipt Date: 20110517
  Transmission Date: 20111010
  Serious: Yes (Other)
  Sender: FDA-Public Use
  Company Number: None

PATIENT
  Sex: Female

DRUGS (3)
  1. VELCADE [Suspect]
     Indication: MULTIPLE MYELOMA
  2. DEXAMETHASONE [Suspect]
  3. THALIDOMIDE [Suspect]

REACTIONS (3)
  - NO THERAPEUTIC RESPONSE [None]
  - MENTAL IMPAIRMENT [None]
  - FATIGUE [None]
